FAERS Safety Report 17139607 (Version 1)
Quarter: 2019Q4

REPORT INFORMATION
  Report Type: Spontaneous
  Country: US (occurrence: US)
  Receive Date: 20191211
  Receipt Date: 20191211
  Transmission Date: 20200122
  Serious: Yes (Life-Threatening, Hospitalization, Other)
  Sender: FDA-Public Use
  Company Number: US-TORRENT-00009542

PATIENT
  Age: 52 Year
  Sex: Female

DRUGS (5)
  1. TRAZODONE [Interacting]
     Active Substance: TRAZODONE HYDROCHLORIDE
     Indication: MAJOR DEPRESSION
  2. LIDOCAINE. [Interacting]
     Active Substance: LIDOCAINE
     Indication: HEADACHE
     Route: 041
  3. GABAPENTIN. [Concomitant]
     Active Substance: GABAPENTIN
     Indication: PRODUCT USED FOR UNKNOWN INDICATION
  4. METFORMIN [Concomitant]
     Active Substance: METFORMIN HYDROCHLORIDE
     Indication: PRODUCT USED FOR UNKNOWN INDICATION
  5. SERTRALINE [Suspect]
     Active Substance: SERTRALINE HYDROCHLORIDE
     Indication: MAJOR DEPRESSION

REACTIONS (12)
  - Nystagmus [Unknown]
  - Drug interaction [Unknown]
  - Bradycardia [Recovered/Resolved]
  - Cardiac arrest [Recovered/Resolved]
  - Blood alkaline phosphatase increased [Unknown]
  - Drug level increased [Unknown]
  - Dizziness [Unknown]
  - Toxicity to various agents [Unknown]
  - Nausea [Unknown]
  - Pulseless electrical activity [Recovered/Resolved]
  - Balance disorder [Unknown]
  - Syncope [Unknown]
